FAERS Safety Report 4624305-4 (Version None)
Quarter: 2005Q1

REPORT INFORMATION
  Report Type: 
  Country: None (occurrence: None)
  Receive Date: 20050331
  Receipt Date: 20040302
  Transmission Date: 20050727
  Serious: Yes (Death)
  Sender: FDA-Public Use
  Company Number: US-ABBOTT-04P-163-0252002-00

PATIENT
  Sex: Male

DRUGS (10)
  1. RITONAVIR SOFT GELATIN CAPSULES [Suspect]
     Indication: HIV INFECTION
     Route: 048
     Dates: start: 20030908, end: 20040113
  2. TIPRANAVIR [Concomitant]
     Indication: HIV INFECTION
     Route: 048
     Dates: start: 20030908, end: 20040113
  3. IPRATROPIUM BROMIDE [Concomitant]
     Indication: EMPHYSEMA
     Route: 048
     Dates: end: 20040114
  4. ATORVASTATIN CALCIUM [Concomitant]
     Indication: HYPERLIPIDAEMIA
     Route: 048
     Dates: start: 20031117, end: 20040114
  5. GEMFIBROZIL [Concomitant]
     Indication: HYPERLIPIDAEMIA
     Route: 048
     Dates: end: 20040114
  6. LIQUID NUTRITIONAL SUPPLEMENT [Concomitant]
     Indication: NUTRITIONAL SUPPORT
     Route: 048
     Dates: end: 20040114
  7. DIPHENHYDRAMINE [Concomitant]
     Indication: URTICARIA CHOLINERGIC
     Route: 048
     Dates: end: 20040114
  8. GATIFLOXACIN [Concomitant]
     Indication: BRONCHITIS
     Route: 048
     Dates: start: 20040105
  9. FLUNISOLIDE [Concomitant]
     Indication: BRONCHITIS
     Route: 048
     Dates: start: 20040105
  10. LORATADINE [Concomitant]
     Indication: HYPERSENSITIVITY
     Route: 048
     Dates: start: 20040105

REACTIONS (2)
  - CHRONIC OBSTRUCTIVE PULMONARY DISEASE [None]
  - DEATH [None]
